FAERS Safety Report 8139590-4 (Version None)
Quarter: 2012Q1

REPORT INFORMATION
  Report Type: 
  Country: None (occurrence: None)
  Receive Date: 20120215
  Receipt Date: 20120206
  Transmission Date: 20120608
  Serious: Yes (Hospitalization)
  Sender: FDA-Public Use
  Company Number: PHEH2012US001441

PATIENT
  Sex: Male
  Weight: 58 kg

DRUGS (1)
  1. FOCALIN XR [Suspect]
     Indication: ATTENTION DEFICIT/HYPERACTIVITY DISORDER
     Dosage: 5 MG, DAILY
     Route: 048
     Dates: end: 20120111

REACTIONS (4)
  - FLUSHING [None]
  - NERVOUSNESS [None]
  - CRYING [None]
  - SPEECH DISORDER [None]
